FAERS Safety Report 19978246 (Version 1)
Quarter: 2021Q4

REPORT INFORMATION
  Report Type: Spontaneous
  Country: US (occurrence: US)
  Receive Date: 20211021
  Receipt Date: 20211021
  Transmission Date: 20220303
  Serious: Yes (Life-Threatening)
  Sender: FDA-Public Use
  Company Number: None

PATIENT
  Age: 33 Year
  Sex: Female
  Weight: 72.57 kg

DRUGS (7)
  1. PARAGARD T 380A [Suspect]
     Active Substance: COPPER
     Dates: start: 20210401, end: 20210415
  2. VITAMINS [Concomitant]
     Active Substance: VITAMINS
  3. VITAMIN D [Concomitant]
     Active Substance: VITAMIN D NOS
  4. ZINC [Concomitant]
     Active Substance: ZINC
  5. CALCIUM [Concomitant]
     Active Substance: CALCIUM
  6. VITAMIN C [Concomitant]
     Active Substance: ASCORBIC ACID
  7. DHA OIL [Concomitant]

REACTIONS (1)
  - Pregnancy with contraceptive device [None]

NARRATIVE: CASE EVENT DATE: 20200530
